FAERS Safety Report 17122391 (Version 1)
Quarter: 2019Q4

REPORT INFORMATION
  Report Type: Spontaneous
  Country: US (occurrence: US)
  Receive Date: 20191206
  Receipt Date: 20191206
  Transmission Date: 20200122
  Serious: No
  Sender: FDA-Public Use
  Company Number: US-VERTEX PHARMACEUTICALS-2019-011947

PATIENT
  Age: 21 Year
  Sex: Female

DRUGS (3)
  1. CRESEMBA [Concomitant]
     Active Substance: ISAVUCONAZONIUM SULFATE
  2. TRIKAFTA [Suspect]
     Active Substance: ELEXACAFTOR\IVACAFTOR\TEZACAFTOR
     Dosage: 2 TABLETS (ELE 100MG/TEZ 50MG/IVA 75MG) DAILY ALTERNATING WITH 1 TABLET (IVA 150MG) DAILY X 2WEEKS
     Route: 048
     Dates: start: 201911
  3. TRIKAFTA [Suspect]
     Active Substance: ELEXACAFTOR\IVACAFTOR\TEZACAFTOR
     Indication: CYSTIC FIBROSIS
     Dosage: FULL DOSE (ELEXA100 MG/TEZ 50 MG/IVA 75 MG)
     Route: 048
     Dates: start: 20191106, end: 20191110

REACTIONS (4)
  - Abdominal pain [Recovering/Resolving]
  - Back pain [Recovering/Resolving]
  - Vomiting [Recovering/Resolving]
  - Steatorrhoea [Recovering/Resolving]

NARRATIVE: CASE EVENT DATE: 20191109
